FAERS Safety Report 10249645 (Version 24)
Quarter: 2021Q3

REPORT INFORMATION
  Report Type: Spontaneous
  Country: US (occurrence: US)
  Receive Date: 20140620
  Receipt Date: 20210705
  Transmission Date: 20211014
  Serious: Yes (Other)
  Sender: FDA-Public Use
  Company Number: US-PFIZER INC-2014170569

PATIENT
  Age: 67 Year
  Sex: Female

DRUGS (8)
  1. LYRICA [Suspect]
     Active Substance: PREGABALIN
     Indication: INTERVERTEBRAL DISC DEGENERATION
  2. LYRICA [Suspect]
     Active Substance: PREGABALIN
     Indication: NEURALGIA
  3. LYRICA [Suspect]
     Active Substance: PREGABALIN
     Indication: SCIATICA
  4. LYRICA [Suspect]
     Active Substance: PREGABALIN
     Indication: RADICULOPATHY
  5. LYRICA [Suspect]
     Active Substance: PREGABALIN
     Indication: BACK PAIN
  6. LYRICA [Suspect]
     Active Substance: PREGABALIN
     Indication: BACK DISORDER
  7. LYRICA [Suspect]
     Active Substance: PREGABALIN
     Indication: RADICULOPATHY
  8. LYRICA [Suspect]
     Active Substance: PREGABALIN
     Indication: FIBROMYALGIA
     Dosage: 150 MG, 2X/DAY
     Route: 048

REACTIONS (30)
  - Balance disorder [Unknown]
  - Gait disturbance [Unknown]
  - Fall [Recovered/Resolved]
  - Pain [Unknown]
  - Nasal pruritus [Unknown]
  - Product dose omission issue [Unknown]
  - Sports injury [Unknown]
  - Back disorder [Unknown]
  - Viral infection [Unknown]
  - Condition aggravated [Unknown]
  - Weight decreased [Unknown]
  - Migraine [Unknown]
  - Eye pruritus [Unknown]
  - Rib fracture [Unknown]
  - Lower limb fracture [Unknown]
  - Hypersomnia [Unknown]
  - Inflammatory carcinoma of the breast [Unknown]
  - Headache [Unknown]
  - Vomiting [Unknown]
  - Intentional product use issue [Unknown]
  - Breast cancer female [Unknown]
  - Illness [Unknown]
  - Infection [Unknown]
  - Pyrexia [Unknown]
  - Diarrhoea [Unknown]
  - Nausea [Unknown]
  - Musculoskeletal discomfort [Unknown]
  - Pruritus [Unknown]
  - Injury [Unknown]
  - Scab [Unknown]

NARRATIVE: CASE EVENT DATE: 2018
